FAERS Safety Report 25807183 (Version 1)
Quarter: 2025Q3

REPORT INFORMATION
  Report Type: Spontaneous
  Country: US (occurrence: US)
  Receive Date: 20250916
  Receipt Date: 20250916
  Transmission Date: 20251020
  Serious: Yes (Hospitalization)
  Sender: MYLAN
  Company Number: US-MYLANLABS-2025M1078154

PATIENT
  Age: 75 Year
  Sex: Female

DRUGS (8)
  1. ESMOLOL [Suspect]
     Active Substance: ESMOLOL HYDROCHLORIDE
     Indication: Heart rate increased
  2. ESMOLOL [Suspect]
     Active Substance: ESMOLOL HYDROCHLORIDE
     Route: 065
  3. ESMOLOL [Suspect]
     Active Substance: ESMOLOL HYDROCHLORIDE
     Route: 065
  4. ESMOLOL [Suspect]
     Active Substance: ESMOLOL HYDROCHLORIDE
  5. NICARDIPINE [Suspect]
     Active Substance: NICARDIPINE
     Indication: Hypertension
  6. NICARDIPINE [Suspect]
     Active Substance: NICARDIPINE
     Route: 065
  7. NICARDIPINE [Suspect]
     Active Substance: NICARDIPINE
     Route: 065
  8. NICARDIPINE [Suspect]
     Active Substance: NICARDIPINE

REACTIONS (1)
  - Drug ineffective [Unknown]
